FAERS Safety Report 8965610 (Version 3)
Quarter: 2013Q1

REPORT INFORMATION
  Report Type: Spontaneous
  Country: GB (occurrence: None)
  Receive Date: 20121205
  Receipt Date: 20121211
  Transmission Date: 20140127
  Serious: Yes (Other)
  Sender: FDA-Public Use
  Company Number: AUR-APL-2012-05060

PATIENT
  Sex: Female

DRUGS (6)
  1. METFORMIN (METFORMIN) [Suspect]
     Indication: PRODUCT USED FOR UNKNOWN INDICATION
     Dosage: 2550 MG  (850 MG, 3 IN 1 D), UNKNOWN
  2. GLICLAZIDE [Concomitant]
  3. OMEPRAZOLE [Concomitant]
  4. PARACETAMOL [Concomitant]
  5. RAMIPRIL [Concomitant]
  6. SIMVASTATIN [Concomitant]

REACTIONS (2)
  - Oesophageal ulcer [None]
  - Oesophagitis [None]
